FAERS Safety Report 14075948 (Version 2)
Quarter: 2017Q4

REPORT INFORMATION
  Report Type: Spontaneous
  Country: GB (occurrence: GB)
  Receive Date: 20171011
  Receipt Date: 20171026
  Transmission Date: 20180321
  Serious: Yes (Other)
  Sender: FDA-Public Use
  Company Number: GB-GILEAD-2017-0296624

PATIENT
  Age: 42 Year
  Sex: Male

DRUGS (5)
  1. TICAGRELOR. [Suspect]
     Active Substance: TICAGRELOR
     Indication: HEPATITIS C
     Dosage: UNK
     Route: 065
     Dates: start: 201709
  2. TICAGRELOR. [Suspect]
     Active Substance: TICAGRELOR
     Indication: HEPATITIS C
  3. EPCLUSA [Suspect]
     Active Substance: SOFOSBUVIR\VELPATASVIR
     Indication: HEPATITIS C
     Dosage: UNK, TABLET
     Route: 065
     Dates: start: 201709
  4. SOVALDI [Suspect]
     Active Substance: SOFOSBUVIR
     Indication: HEPATITIS C
     Dosage: UNK
     Route: 065
     Dates: start: 201709
  5. ASPIRIN                            /00002701/ [Suspect]
     Active Substance: ASPIRIN
     Indication: HEPATITIS C
     Dosage: UNK
     Route: 065
     Dates: start: 201709

REACTIONS (3)
  - Mouth haemorrhage [Not Recovered/Not Resolved]
  - Drug interaction [Not Recovered/Not Resolved]
  - Labelled drug-drug interaction medication error [Not Recovered/Not Resolved]

NARRATIVE: CASE EVENT DATE: 201709
